FAERS Safety Report 8116730-4 (Version None)
Quarter: 2011Q4

REPORT INFORMATION
  Report Type: 
  Country: None (occurrence: None)
  Receive Date: 20111227
  Receipt Date: 20111017
  Transmission Date: 20120403
  Serious: No
  Sender: FDA-Public Use
  Company Number: PHEH2011US03610

PATIENT
  Age: 61 Year
  Sex: Female

DRUGS (7)
  1. ARICEPT [Concomitant]
  2. GABAPENTIN [Concomitant]
  3. SCOPOLAMINE [Concomitant]
  4. GILENYA [Suspect]
     Indication: MULTIPLE SCLEROSIS
     Dosage: 0.5 MG, QD, ORAL
     Route: 048
     Dates: start: 20110902
  5. CADUET [Concomitant]
  6. CYMBALTA (DULOXETINE HYDRUUR7LURCLUM) [Concomitant]
  7. TIZANIDINE HCL [Concomitant]

REACTIONS (3)
  - LYMPHOCYTE COUNT DECREASED [None]
  - FATIGUE [None]
  - DECREASED APPETITE [None]
